FAERS Safety Report 7610781-1 (Version None)
Quarter: 2011Q3

REPORT INFORMATION
  Report Type: 
  Country: None (occurrence: None)
  Receive Date: 20110715
  Receipt Date: 20110707
  Transmission Date: 20111222
  Serious: Yes (Hospitalization)
  Sender: FDA-Public Use
  Company Number: US-SANOFI-AVENTIS-2011SA043843

PATIENT
  Age: 63 Year
  Sex: Female

DRUGS (1)
  1. FERRLECIT [Suspect]
     Route: 051
     Dates: start: 20110704, end: 20110704

REACTIONS (2)
  - BACK PAIN [None]
  - SWOLLEN TONGUE [None]
